FAERS Safety Report 5410138-8 (Version None)
Quarter: 2007Q3

REPORT INFORMATION
  Report Type: 
  Country: None (occurrence: None)
  Receive Date: 20070713
  Receipt Date: 20070406
  Transmission Date: 20080115
  Serious: No
  Sender: FDA-Public Use
  Company Number: 2007SP001246

PATIENT
  Age: 23 Year
  Sex: Male
  Weight: 73.7095 kg

DRUGS (5)
  1. LUNESTA [Suspect]
     Indication: INSOMNIA
     Dosage: 3 MG;ORAL
     Route: 048
     Dates: start: 20070404, end: 20070406
  2. SYNTHROID [Concomitant]
  3. MULTIVITAMIN [Concomitant]
  4. CARBOXYMETHYLCELLULOSE [Concomitant]
  5. SODIUM [Concomitant]

REACTIONS (2)
  - INITIAL INSOMNIA [None]
  - SOMNOLENCE [None]
